FAERS Safety Report 24362984 (Version 1)
Quarter: 2024Q3

REPORT INFORMATION
  Report Type: Spontaneous
  Country: US (occurrence: None)
  Receive Date: 20240925
  Receipt Date: 20240925
  Transmission Date: 20241017
  Serious: Yes (Hospitalization)
  Sender: Public
  Company Number: None

PATIENT
  Sex: Female

DRUGS (2)
  1. TACROLIMUS [Suspect]
     Active Substance: TACROLIMUS
     Indication: Liver transplant
     Dosage: 1MG TWICE DAILY BY MOUTH?
     Route: 048
     Dates: start: 202211
  2. AFRIN [Suspect]
     Active Substance: OXYMETAZOLINE

REACTIONS (1)
  - Migraine [None]
